FAERS Safety Report 23149988 (Version 1)
Quarter: 2023Q4

REPORT INFORMATION
  Report Type: Spontaneous
  Country: US (occurrence: US)
  Receive Date: 20231106
  Receipt Date: 20231106
  Transmission Date: 20240110
  Serious: No
  Sender: FDA-Public Use
  Company Number: US-PFIZER INC-202300318500

PATIENT
  Age: 64 Year
  Sex: Male
  Weight: 99.773 kg

DRUGS (2)
  1. CHANTIX [Suspect]
     Active Substance: VARENICLINE TARTRATE
     Indication: Smoking cessation therapy
     Dosage: STARTED OFF TAKING 3, THEN 2, AND THEN 1, AND CONTINUED
  2. CHANTIX [Suspect]
     Active Substance: VARENICLINE TARTRATE
     Indication: Chronic obstructive pulmonary disease

REACTIONS (2)
  - Anxiety [Unknown]
  - Off label use [Unknown]
